FAERS Safety Report 14586084 (Version 2)
Quarter: 2018Q1

REPORT INFORMATION
  Report Type: Report from Study
  Country: US (occurrence: US)
  Receive Date: 20180301
  Receipt Date: 20180314
  Transmission Date: 20180509
  Serious: Yes (Hospitalization, Other)
  Sender: FDA-Public Use
  Company Number: PHEH2018US006944

PATIENT
  Sex: Male

DRUGS (1)
  1. ENTRESTO [Suspect]
     Active Substance: SACUBITRIL\VALSARTAN
     Indication: PRODUCT USED FOR UNKNOWN INDICATION
     Route: 065

REACTIONS (8)
  - Blood cholesterol abnormal [Unknown]
  - Pulmonary oedema [Unknown]
  - Hypertension [Unknown]
  - Myocardial infarction [Unknown]
  - Arterial occlusive disease [Unknown]
  - Diabetes mellitus [Unknown]
  - Staphylococcal infection [Unknown]
  - Dyspnoea [Unknown]
